FAERS Safety Report 7063350-9 (Version None)
Quarter: 2010Q4

REPORT INFORMATION
  Report Type: 
  Country: None (occurrence: None)
  Receive Date: 20101026
  Receipt Date: 20101025
  Transmission Date: 20110411
  Serious: Yes (Hospitalization)
  Sender: FDA-Public Use
  Company Number: FR-MERCK-1008FRA00016

PATIENT
  Age: 49 Year
  Sex: Male

DRUGS (9)
  1. PRIMAXIN [Suspect]
     Indication: INFECTION
     Route: 042
     Dates: start: 20100423, end: 20100506
  2. VANCOMYCIN [Suspect]
     Indication: INFECTION
     Route: 042
     Dates: start: 20100419, end: 20100423
  3. TEICOPLANIN [Suspect]
     Indication: INFECTION
     Route: 042
     Dates: start: 20100423, end: 20100506
  4. ACETAMINOPHEN [Concomitant]
     Route: 048
     Dates: start: 20100419, end: 20100511
  5. PERINDOPRIL ARGININE [Concomitant]
     Route: 048
     Dates: start: 20091001
  6. FLECAINIDE ACETATE [Concomitant]
     Indication: ATRIAL FIBRILLATION
     Route: 048
     Dates: start: 20091001
  7. ACEPROMETAZINE MALEATE AND MEPROBAMATE [Concomitant]
     Indication: INSOMNIA
     Route: 048
     Dates: start: 20100105
  8. ENOXAPARIN SODIUM [Concomitant]
     Route: 058
     Dates: start: 20100419, end: 20100424
  9. PIPERACILLIN SODIUM AND TAZOBACTAM SODIUM [Concomitant]
     Indication: INFECTION
     Route: 042
     Dates: start: 20100419, end: 20100423

REACTIONS (6)
  - EOSINOPHILIA [None]
  - ERYTHEMA [None]
  - ORAL MUCOSA EROSION [None]
  - PURPURA [None]
  - PYREXIA [None]
  - SKIN EXFOLIATION [None]
